FAERS Safety Report 8556417-7 (Version None)
Quarter: 2012Q3

REPORT INFORMATION
  Report Type: 
  Country: None (occurrence: None)
  Receive Date: 20120801
  Receipt Date: 20120727
  Transmission Date: 20120928
  Serious: No
  Sender: FDA-Public Use
  Company Number: PHHY2012LB065676

PATIENT
  Sex: Male

DRUGS (7)
  1. CARDULAR [Concomitant]
     Dosage: 1 DF, QD
     Route: 048
     Dates: start: 20050101
  2. TENORMIN [Concomitant]
     Dosage: UNK
     Route: 048
     Dates: start: 20050101
  3. VASCOR [Concomitant]
     Dosage: 1 DF, QD
     Route: 048
     Dates: start: 20050101
  4. TASIGNA [Suspect]
     Indication: CHRONIC MYELOID LEUKAEMIA
     Dosage: 800 MG PER DAY
     Route: 048
     Dates: start: 20120501
  5. GLUCOPHAGE [Concomitant]
     Dosage: 1 DF, Q12H
     Route: 048
     Dates: start: 20080101
  6. AMARYL [Concomitant]
     Dosage: 1 DF, QD
     Route: 048
     Dates: start: 20080101
  7. ASPIRIN [Concomitant]
     Dosage: 1 DF, QD
     Route: 048
     Dates: start: 20050101

REACTIONS (1)
  - ABSCESS [None]
